FAERS Safety Report 6048601-1 (Version None)
Quarter: 2009Q1

REPORT INFORMATION
  Report Type: 
  Country: None (occurrence: None)
  Receive Date: 20090123
  Receipt Date: 20090120
  Transmission Date: 20090719
  Serious: Yes (Death, Hospitalization)
  Sender: FDA-Public Use
  Company Number: FR-ASTRAZENECA-2009CG00233

PATIENT
  Age: 25528 Day
  Sex: Male

DRUGS (10)
  1. CRESTOR [Suspect]
     Route: 048
  2. GLUCOPHAGE [Suspect]
     Indication: TYPE 2 DIABETES MELLITUS
     Route: 048
     Dates: start: 20020101, end: 20080825
  3. AVANDIA [Suspect]
     Indication: TYPE 2 DIABETES MELLITUS
     Route: 048
     Dates: end: 20080825
  4. TRANDATE [Suspect]
     Route: 048
     Dates: end: 20080825
  5. CORDARONE [Suspect]
     Indication: ATRIAL FIBRILLATION
     Route: 048
     Dates: end: 20080825
  6. LOXEN [Suspect]
     Route: 048
     Dates: end: 20080825
  7. PREVISCAN [Suspect]
     Route: 048
     Dates: end: 20080825
  8. LASILIX [Suspect]
     Route: 048
  9. ZYLORIC [Suspect]
     Route: 048
  10. OROPERIDYS [Suspect]
     Route: 048

REACTIONS (2)
  - CARDIOGENIC SHOCK [None]
  - LACTIC ACIDOSIS [None]
